FAERS Safety Report 10528709 (Version 2)
Quarter: 2014Q4

REPORT INFORMATION
  Report Type: Spontaneous
  Country: None (occurrence: US)
  Receive Date: 20141020
  Receipt Date: 20141027
  Transmission Date: 20150528
  Serious: Yes (Other)
  Sender: FDA-Public Use
  Company Number: US-TEVA-516201USA

PATIENT
  Sex: Male

DRUGS (1)
  1. CARBIDOPA AND LEVODOPA [Suspect]
     Active Substance: CARBIDOPA\LEVODOPA
     Dosage: 25/100

REACTIONS (5)
  - Drooling [Recovered/Resolved]
  - Coma [Recovered/Resolved]
  - Wheelchair user [Recovered/Resolved]
  - Lethargy [Recovered/Resolved]
  - Cognitive disorder [Recovered/Resolved]
